FAERS Safety Report 5532163-9 (Version None)
Quarter: 2007Q4

REPORT INFORMATION
  Report Type: 
  Country: None (occurrence: None)
  Receive Date: 20071128
  Receipt Date: 20071113
  Transmission Date: 20080405
  Serious: Yes (Hospitalization, Other)
  Sender: FDA-Public Use
  Company Number: S07-SWE-05702-01

PATIENT
  Age: 76 Year
  Sex: Male

DRUGS (8)
  1. MEMANTINE HCL [Suspect]
     Indication: DEMENTIA ALZHEIMER'S TYPE
     Dates: end: 20070601
  2. MEMANTINE HCL [Suspect]
     Indication: DEMENTIA ALZHEIMER'S TYPE
  3. CITALOPRAM HYDROBROMIDE [Concomitant]
  4. OPTIMOL (TIMOLOL MALEATE) [Concomitant]
  5. SPARKAL [Concomitant]
  6. IDEOS [Concomitant]
  7. BETOLVIDON  (CYANOCOBALAMIN) [Concomitant]
  8. XATRAL (ALFUZOSIN) [Concomitant]

REACTIONS (5)
  - CEREBRAL INFARCTION [None]
  - CONFUSIONAL STATE [None]
  - FALL [None]
  - FEMORAL NECK FRACTURE [None]
  - GAIT DISTURBANCE [None]
